FAERS Safety Report 13659195 (Version 1)
Quarter: 2017Q2

REPORT INFORMATION
  Report Type: Spontaneous
  Country: US (occurrence: US)
  Receive Date: 20170615
  Receipt Date: 20170615
  Transmission Date: 20170830
  Serious: Yes (Other)
  Sender: FDA-Public Use
  Company Number: None

PATIENT
  Age: 63 Year
  Sex: Female
  Weight: 45 kg

DRUGS (8)
  1. BENADRYL [Concomitant]
     Active Substance: DIPHENHYDRAMINE HYDROCHLORIDE
  2. MYLANTA [Concomitant]
     Active Substance: ALUMINUM HYDROXIDE\DIMETHICONE\MAGNESIUM HYDROXIDE
  3. VITAMIN B COMPLEX [Concomitant]
     Active Substance: CYANOCOBALAMIN\DEXPANTHENOL\NIACINAMIDE\PYRIDOXINE HYDROCHLORIDE\RIBOFLAVIN 5^-PHOSPHATE SODIUM\THIAMINE HYDROCHLORIDE\VITAMIN B COMPLEX
  4. GAS-X [Concomitant]
     Active Substance: DIMETHICONE
  5. LEVETIRACETAM. [Concomitant]
     Active Substance: LEVETIRACETAM
  6. CARBAMAZEPINE. [Concomitant]
     Active Substance: CARBAMAZEPINE
  7. PEPCID [Concomitant]
     Active Substance: FAMOTIDINE
  8. OXYBUTYNIN [Suspect]
     Active Substance: OXYBUTYNIN
     Indication: HYPERTONIC BLADDER
     Dosage: QUANTITY:1 TEASPOON(S);?TWICE A DAY ORAL
     Route: 048
     Dates: start: 20170607, end: 20170613

REACTIONS (9)
  - Cough [None]
  - Dry throat [None]
  - Dry skin [None]
  - Dry mouth [None]
  - Dysphagia [None]
  - Mouth swelling [None]
  - Dyspnoea [None]
  - Pharyngeal oedema [None]
  - Increased viscosity of upper respiratory secretion [None]

NARRATIVE: CASE EVENT DATE: 20170608
